FAERS Safety Report 8320410-X (Version None)
Quarter: 2012Q2

REPORT INFORMATION
  Report Type: 
  Country: None (occurrence: None)
  Receive Date: 20120426
  Receipt Date: 20120426
  Transmission Date: 20120825
  Serious: No
  Sender: FDA-Public Use
  Company Number: None

PATIENT
  Age: 53 Year
  Sex: Female
  Weight: 72.5755 kg

DRUGS (1)
  1. CIPROFLOXACIN HCL [Suspect]
     Indication: ENTEROCOLITIS INFECTIOUS
     Dosage: 500MG. 2XDAY FOR 14 DAYS BY MOUTH
     Route: 048
     Dates: start: 20120309, end: 20120323

REACTIONS (2)
  - ARTHROPATHY [None]
  - TENDON DISORDER [None]
